FAERS Safety Report 19911001 (Version 3)
Quarter: 2022Q2

REPORT INFORMATION
  Report Type: Report from Study
  Country: US (occurrence: US)
  Receive Date: 20211004
  Receipt Date: 20220418
  Transmission Date: 20220721
  Serious: No
  Sender: FDA-Public Use
  Company Number: US-SA-SAC20210930001031

PATIENT
  Age: 48 Year
  Sex: Female
  Weight: 48.98 kg

DRUGS (12)
  1. DUPILUMAB [Suspect]
     Active Substance: DUPILUMAB
     Indication: Asthma
     Dosage: 300 MG, QOW
     Route: 058
     Dates: start: 20210831
  2. DUPILUMAB [Suspect]
     Active Substance: DUPILUMAB
     Indication: Eczema
  3. DUPILUMAB [Suspect]
     Active Substance: DUPILUMAB
     Indication: Nasal polyps
  4. TRELEGY ELLIPTA [Concomitant]
     Active Substance: FLUTICASONE FUROATE\UMECLIDINIUM BROMIDE\VILANTEROL TRIFENATATE
     Dosage: UNK
  5. SYMBICORT [Concomitant]
     Active Substance: BUDESONIDE\FORMOTEROL FUMARATE DIHYDRATE
     Dosage: UNK
  6. PREDNISONE [Concomitant]
     Active Substance: PREDNISONE
     Dosage: UNK
  7. IPRATROPIUM BROMIDE [Concomitant]
     Active Substance: IPRATROPIUM BROMIDE
     Dosage: UNK
  8. BUDESONIDE [Concomitant]
     Active Substance: BUDESONIDE
     Dosage: UNK
  9. XOLAIR [Concomitant]
     Active Substance: OMALIZUMAB
     Dosage: UNK
  10. ALVESCO [Concomitant]
     Active Substance: CICLESONIDE
     Dosage: UNK
  11. ALVESCO [Concomitant]
     Active Substance: CICLESONIDE
  12. FLONASE SENSIMIST ALLERGY RELIEF [Concomitant]
     Active Substance: FLUTICASONE FUROATE
     Dosage: UNK

REACTIONS (5)
  - Therapeutic response decreased [Unknown]
  - Condition aggravated [Unknown]
  - Eosinophil count increased [Unknown]
  - Extra dose administered [Unknown]
  - Product use in unapproved indication [Unknown]

NARRATIVE: CASE EVENT DATE: 20210101
